FAERS Safety Report 6200989-4 (Version None)
Quarter: 2009Q2

REPORT INFORMATION
  Report Type: 
  Country: None (occurrence: None)
  Receive Date: 20090525
  Receipt Date: 20090512
  Transmission Date: 20091009
  Serious: Yes (Hospitalization)
  Sender: FDA-Public Use
  Company Number: US-ROCHE-632861

PATIENT
  Age: 15 Year
  Sex: Female

DRUGS (1)
  1. CELLCEPT [Suspect]
     Dosage: 1500 MG IN MORNING AND 1000 MG IN THE EVENING
     Route: 065

REACTIONS (2)
  - DEPRESSION [None]
  - SUICIDE ATTEMPT [None]
